FAERS Safety Report 6250479-8 (Version None)
Quarter: 2009Q2

REPORT INFORMATION
  Report Type: 
  Country: None (occurrence: None)
  Receive Date: 20090630
  Receipt Date: 20090625
  Transmission Date: 20091009
  Serious: Yes (Other)
  Sender: FDA-Public Use
  Company Number: US-JNJFOC-20090609355

PATIENT
  Age: 77 Year
  Sex: Female
  Weight: 51.26 kg

DRUGS (6)
  1. LEVAQUIN [Suspect]
     Indication: URINARY TRACT INFECTION
     Route: 048
  2. TEGRETOL [Concomitant]
     Route: 065
  3. ACIPHEX [Concomitant]
     Route: 065
  4. LIPITOR [Concomitant]
     Route: 065
  5. FOSAMAX [Concomitant]
     Route: 065
  6. ASPIRIN [Concomitant]
     Route: 065

REACTIONS (1)
  - INCORRECT DOSE ADMINISTERED [None]
